FAERS Safety Report 6619139-5 (Version None)
Quarter: 2010Q1

REPORT INFORMATION
  Report Type: 
  Country: None (occurrence: None)
  Receive Date: 20100305
  Receipt Date: 20100305
  Transmission Date: 20100710
  Serious: Yes (Hospitalization)
  Sender: FDA-Public Use
  Company Number: None

PATIENT
  Age: 83 Year
  Sex: Male
  Weight: 70 kg

DRUGS (2)
  1. CALCITRIOL [Suspect]
     Indication: BLOOD PARATHYROID HORMONE INCREASED
     Dosage: 1 MCG EVERY DAY PO
     Route: 048
     Dates: start: 20100126, end: 20100209
  2. CALCITRIOL [Suspect]
     Indication: RENAL FAILURE CHRONIC
     Dosage: 1 MCG EVERY DAY PO
     Route: 048
     Dates: start: 20100126, end: 20100209

REACTIONS (12)
  - ASTHENIA [None]
  - BALANCE DISORDER [None]
  - CONFUSIONAL STATE [None]
  - DECREASED APPETITE [None]
  - DIZZINESS [None]
  - FATIGUE [None]
  - HYPERCALCAEMIA [None]
  - LETHARGY [None]
  - MENTAL DISORDER [None]
  - SEDATION [None]
  - SOMNOLENCE [None]
  - SPEECH DISORDER [None]
